FAERS Safety Report 21830747 (Version 1)
Quarter: 2023Q1

REPORT INFORMATION
  Report Type: Spontaneous
  Country: US (occurrence: None)
  Receive Date: 20230106
  Receipt Date: 20230106
  Transmission Date: 20230418
  Serious: No
  Sender: FDA-Public Use
  Company Number: None

PATIENT
  Age: 68 Year
  Sex: Female
  Weight: 84.37 kg

DRUGS (16)
  1. CAPECITABINE [Suspect]
     Active Substance: CAPECITABINE
     Indication: Breast cancer female
     Dosage: FREQUENCY : TWICE A DAY;?
     Route: 048
     Dates: start: 202210
  2. AMLODIPINE [Concomitant]
     Active Substance: AMLODIPINE BESYLATE
  3. CARBAMAZEPINE [Concomitant]
     Active Substance: CARBAMAZEPINE
  4. CARISOPRODOL [Concomitant]
     Active Substance: CARISOPRODOL
  5. CEFUROXIME [Concomitant]
  6. CELEBREX [Concomitant]
  7. ELIQUIS [Concomitant]
  8. EMLA [Concomitant]
  9. GABAPENTIN [Concomitant]
  10. HYDROXYZINE [Concomitant]
  11. LUNESTA [Concomitant]
  12. ONDANSETRON [Concomitant]
  13. ORAMAGICRX [Concomitant]
  14. OS-CAL + D3 [Concomitant]
  15. PREDNISONE [Concomitant]
  16. TRAMADOL [Concomitant]

REACTIONS (2)
  - Back pain [None]
  - SARS-CoV-2 test positive [None]

NARRATIVE: CASE EVENT DATE: 20230103
